FAERS Safety Report 8421186-8 (Version None)
Quarter: 2012Q2

REPORT INFORMATION
  Report Type: 
  Country: None (occurrence: None)
  Receive Date: 20120608
  Receipt Date: 20120607
  Transmission Date: 20120825
  Serious: Yes (Other)
  Sender: FDA-Public Use
  Company Number: CA-PURDUE-CAN-2012-0003072

PATIENT
  Age: 19 Year
  Sex: Male

DRUGS (1)
  1. OXYCODONE HCL [Suspect]
     Indication: PRODUCT USED FOR UNKNOWN INDICATION
     Dosage: 8 TABLET, DAILY
     Route: 065

REACTIONS (3)
  - DRUG ABUSE [None]
  - AGGRESSION [None]
  - DRUG DEPENDENCE [None]
